FAERS Safety Report 10779037 (Version 1)
Quarter: 2015Q1

REPORT INFORMATION
  Report Type: Report from Study
  Country: CA (occurrence: CA)
  Receive Date: 20150210
  Receipt Date: 20150210
  Transmission Date: 20150721
  Serious: Yes (Death, Hospitalization)
  Sender: FDA-Public Use
  Company Number: CA-JNJFOC-20150201620

PATIENT
  Sex: Female

DRUGS (2)
  1. TYLENOL [Suspect]
     Active Substance: ACETAMINOPHEN
     Indication: PRODUCT USED FOR UNKNOWN INDICATION
     Dosage: 40 TYLENOL TABLETS
     Route: 048
     Dates: start: 19990323, end: 19990323
  2. ETHANOL [Suspect]
     Active Substance: ALCOHOL
     Indication: PRODUCT USED FOR UNKNOWN INDICATION
     Route: 048

REACTIONS (12)
  - Pancreatitis acute [Fatal]
  - Renal failure [Fatal]
  - Pharyngeal ulceration [Fatal]
  - Acute hepatic failure [Fatal]
  - Toxicity to various agents [Fatal]
  - Overdose [Fatal]
  - Herpes simplex pneumonia [Fatal]
  - Pneumonia escherichia [Fatal]
  - Hepatorenal syndrome [Fatal]
  - Intestinal ischaemia [Fatal]
  - Pharyngeal haemorrhage [Fatal]
  - Candida sepsis [Fatal]
